FAERS Safety Report 8306010-6 (Version None)
Quarter: 2012Q1

REPORT INFORMATION
  Report Type: 
  Country: None (occurrence: None)
  Receive Date: 20120327
  Receipt Date: 20091023
  Transmission Date: 20120608
  Serious: Yes (Hospitalization)
  Sender: FDA-Public Use
  Company Number: PHEH2009US14483

PATIENT
  Age: 68 Year
  Sex: Female

DRUGS (1)
  1. GLEEVEC [Suspect]
     Indication: RHEUMATOID LUNG
     Dosage: 300 MG, QD, ORAL
     Route: 048

REACTIONS (3)
  - WEIGHT DECREASED [None]
  - CARDIAC FAILURE CONGESTIVE [None]
  - GENERALISED OEDEMA [None]
